FAERS Safety Report 5169152-2 (Version None)
Quarter: 2006Q4

REPORT INFORMATION
  Report Type: 
  Country: None (occurrence: None)
  Receive Date: 20061204
  Receipt Date: 20061124
  Transmission Date: 20070319
  Serious: Yes (Other)
  Sender: FDA-Public Use
  Company Number: 2006145083

PATIENT
  Sex: Male
  Weight: 63.5036 kg

DRUGS (3)
  1. VIAGRA [Suspect]
     Indication: ERECTILE DYSFUNCTION
     Dosage: 100 MG (100 MG, 1 AS NECESSARY), ORAL
     Route: 048
  2. TOPROL-XL [Concomitant]
  3. GLUCOSAMINE WITH MSM (GLUCOSAMINE, METHYLSULFONYLMETHANE) [Concomitant]

REACTIONS (2)
  - CATARACT [None]
  - CYANOPSIA [None]
